FAERS Safety Report 16629960 (Version 3)
Quarter: 2020Q1

REPORT INFORMATION
  Report Type: Report from Study
  Country: BR (occurrence: BR)
  Receive Date: 20190725
  Receipt Date: 20200122
  Transmission Date: 20200409
  Serious: Yes (Other)
  Sender: FDA-Public Use
  Company Number: PHHY2018BR066254

PATIENT
  Age: 62 Year
  Sex: Female
  Weight: 60 kg

DRUGS (5)
  1. COSENTYX [Suspect]
     Active Substance: SECUKINUMAB
     Indication: PSORIASIS
     Dosage: 300 MG, QMO
     Route: 058
     Dates: start: 201807
  2. DAIVOBET [Concomitant]
     Active Substance: BETAMETHASONE DIPROPIONATE\CALCIPOTRIENE
     Indication: PSORIASIS
     Dosage: UNK UNK, BID (IN MORNING AND NIGHT)
     Route: 065
  3. COSENTYX [Suspect]
     Active Substance: SECUKINUMAB
     Dosage: 300 MG, QMO
     Route: 058
  4. COSENTYX [Suspect]
     Active Substance: SECUKINUMAB
     Indication: PSORIATIC ARTHROPATHY
     Dosage: 300 MG, QW (STARTING WEEKLY THEN MONTHLY)
     Route: 058
     Dates: start: 20180629
  5. COSENTYX [Suspect]
     Active Substance: SECUKINUMAB
     Dosage: 300 MG, UNKNOWN (TWO DOSES OF 150 MG)
     Route: 065

REACTIONS (18)
  - Stress [Unknown]
  - Blister [Unknown]
  - Pain [Not Recovered/Not Resolved]
  - Rash [Unknown]
  - Pre-existing condition improved [Unknown]
  - Urinary incontinence [Not Recovered/Not Resolved]
  - Psoriasis [Unknown]
  - Arteriosclerosis [Unknown]
  - Therapeutic response unexpected [Unknown]
  - Weight increased [Unknown]
  - Macule [Recovered/Resolved]
  - Myocardial ischaemia [Unknown]
  - Memory impairment [Unknown]
  - Blood potassium decreased [Unknown]
  - Scab [Recovering/Resolving]
  - Nervousness [Unknown]
  - Arthralgia [Not Recovered/Not Resolved]
  - Malaise [Unknown]

NARRATIVE: CASE EVENT DATE: 20181012
